FAERS Safety Report 5107536-9 (Version None)
Quarter: 2006Q3

REPORT INFORMATION
  Report Type: 
  Country: None (occurrence: None)
  Receive Date: 20060913
  Receipt Date: 20060913
  Transmission Date: 20061208
  Serious: Yes (Other)
  Sender: FDA-Public Use
  Company Number: None

PATIENT
  Age: 28 Year
  Sex: Female
  Weight: 108.8633 kg

DRUGS (3)
  1. RISPERDAL [Suspect]
     Indication: ANXIETY
     Dosage: 4 MG QD PO
     Route: 048
     Dates: start: 20060520, end: 20060703
  2. RISPERDAL [Suspect]
     Indication: BIPOLAR DISORDER
     Dosage: 4 MG QD PO
     Route: 048
     Dates: start: 20060520, end: 20060703
  3. PRENATAL MULTIVITAMIN [Concomitant]

REACTIONS (2)
  - DRUG EXPOSURE DURING PREGNANCY [None]
  - PREGNANCY [None]
